FAERS Safety Report 25343059 (Version 1)
Quarter: 2025Q2

REPORT INFORMATION
  Report Type: Spontaneous
  Country: US (occurrence: None)
  Receive Date: 20250519
  Receipt Date: 20250519
  Transmission Date: 20250717
  Serious: Yes (Other)
  Sender: FDA-CTU
  Company Number: None

PATIENT
  Age: 43 Year
  Sex: Female
  Weight: 70.2 kg

DRUGS (4)
  1. QELBREE [Suspect]
     Active Substance: VILOXAZINE HYDROCHLORIDE
     Indication: Attention deficit hyperactivity disorder
     Dosage: ?7 CAPSULES DAILY ORAL
     Route: 048
     Dates: start: 20250221, end: 20250227
  2. PROPRANOLOL [Concomitant]
     Active Substance: PROPRANOLOL HYDROCHLORIDE
  3. TRINTELLIX [Concomitant]
     Active Substance: VORTIOXETINE HYDROBROMIDE
  4. OZEMPIC [Concomitant]
     Active Substance: SEMAGLUTIDE

REACTIONS (8)
  - Initial insomnia [None]
  - Eye movement disorder [None]
  - Asthenia [None]
  - Chills [None]
  - Anger [None]
  - Agitation [None]
  - Mood altered [None]
  - Migraine [None]

NARRATIVE: CASE EVENT DATE: 20250227
